FAERS Safety Report 7761247-X (Version None)
Quarter: 2011Q3

REPORT INFORMATION
  Report Type: 
  Country: None (occurrence: None)
  Receive Date: 20110920
  Receipt Date: 20110908
  Transmission Date: 20111222
  Serious: Yes (Hospitalization, Other)
  Sender: FDA-Public Use
  Company Number: US-JNJFOC-20110905171

PATIENT
  Sex: Female
  Weight: 83.92 kg

DRUGS (5)
  1. FENTANYL-100 [Suspect]
     Route: 062
  2. FENTANYL-100 [Suspect]
     Route: 062
  3. FENTANYL-100 [Suspect]
     Indication: NEURALGIA
     Route: 062
  4. FENTANYL-100 [Suspect]
     Route: 062
  5. FENTANYL-100 [Suspect]
     Route: 062

REACTIONS (14)
  - PNEUMONIA [None]
  - URINARY TRACT INFECTION [None]
  - DRUG DIVERSION [None]
  - COLONIC POLYP [None]
  - PRODUCT QUALITY ISSUE [None]
  - UNRESPONSIVE TO STIMULI [None]
  - PYREXIA [None]
  - ABDOMINAL PAIN [None]
  - HEART RATE INCREASED [None]
  - ERYTHEMA [None]
  - PAIN [None]
  - OVERDOSE [None]
  - BLOOD PRESSURE DECREASED [None]
  - HYPERTENSION [None]
